FAERS Safety Report 7087305-3 (Version None)
Quarter: 2010Q4

REPORT INFORMATION
  Report Type: 
  Country: None (occurrence: None)
  Receive Date: 20101107
  Receipt Date: 20100827
  Transmission Date: 20110411
  Serious: Yes (Death, Other)
  Sender: FDA-Public Use
  Company Number: PHHY2010JP58204

PATIENT
  Age: 78 Year
  Sex: Female
  Weight: 45 kg

DRUGS (4)
  1. EXJADE [Suspect]
     Indication: IRON OVERLOAD
     Dosage: 625 MG DAILY
     Route: 048
     Dates: start: 20100217, end: 20100331
  2. ONEALFA [Concomitant]
     Dosage: 1.0?G
     Route: 048
     Dates: end: 20100331
  3. PRONON [Concomitant]
     Dosage: 2DF
     Route: 048
     Dates: end: 20100331
  4. VASOLAN [Concomitant]
     Dosage: 60MG
     Route: 048
     Dates: end: 20100331

REACTIONS (2)
  - FALL [None]
  - SUDDEN DEATH [None]
